FAERS Safety Report 18586609 (Version 2)
Quarter: 2020Q4

REPORT INFORMATION
  Report Type: Spontaneous
  Country: US (occurrence: US)
  Receive Date: 20201207
  Receipt Date: 20201211
  Transmission Date: 20210114
  Serious: No
  Sender: FDA-Public Use
  Company Number: NVSC2020US325470

PATIENT
  Age: 2 Year
  Sex: Female
  Weight: 13 kg

DRUGS (1)
  1. KYMRIAH [Suspect]
     Active Substance: TISAGENLECLEUCEL
     Indication: ACUTE LYMPHOCYTIC LEUKAEMIA
     Dosage: 1 ML, ONCE/SINGLE
     Route: 042
     Dates: start: 20201110

REACTIONS (1)
  - Skin disorder [Unknown]

NARRATIVE: CASE EVENT DATE: 20201110
